FAERS Safety Report 6443200-1 (Version None)
Quarter: 2009Q4

REPORT INFORMATION
  Report Type: 
  Country: None (occurrence: None)
  Receive Date: 20091117
  Receipt Date: 20091110
  Transmission Date: 20100525
  Serious: Yes (Hospitalization)
  Sender: FDA-Public Use
  Company Number: US-ELI_LILLY_AND_COMPANY-US200911002707

PATIENT
  Sex: Female

DRUGS (5)
  1. HUMALOG MIX 75/25 [Suspect]
     Indication: DIABETES MELLITUS
     Dosage: 25 U, EACH MORNING
  2. HUMALOG MIX 75/25 [Suspect]
     Dosage: 25 U, EACH EVENING
  3. COUMADIN [Concomitant]
     Dosage: 5 MG, DAILY (1/D)
     Dates: start: 20091104
  4. LASIX [Concomitant]
     Dosage: 20 MG, DAILY (1/D)
     Dates: start: 20091104
  5. TIMADIN [Concomitant]
     Dosage: UNK, DAILY (1/D)
     Dates: start: 20091104

REACTIONS (1)
  - DYSPNOEA [None]
